FAERS Safety Report 9342445 (Version 2)
Quarter: 2013Q4

REPORT INFORMATION
  Report Type: Spontaneous
  Country: GR (occurrence: GR)
  Receive Date: 20130611
  Receipt Date: 20131017
  Transmission Date: 20140711
  Serious: Yes (Other)
  Sender: FDA-Public Use
  Company Number: PHHY2013GR057658

PATIENT
  Age: 40 Year
  Sex: Female

DRUGS (3)
  1. GILENYA [Suspect]
     Indication: MULTIPLE SCLEROSIS
     Dosage: 0.5 MG, QD
     Route: 048
  2. RESOFERON [Concomitant]
     Indication: IRON DEFICIENCY
  3. MIOREL [Concomitant]

REACTIONS (3)
  - Eosinophilia [Recovered/Resolved]
  - Neck pain [Recovered/Resolved]
  - Pruritus generalised [Unknown]
